FAERS Safety Report 22148814 (Version 1)
Quarter: 2023Q1

REPORT INFORMATION
  Report Type: Spontaneous
  Country: US (occurrence: US)
  Receive Date: 20230328
  Receipt Date: 20230328
  Transmission Date: 20230418
  Serious: No
  Sender: FDA-Public Use
  Company Number: US-CTI BIOPHARMA-2023US03344

PATIENT

DRUGS (11)
  1. VONJO [Suspect]
     Active Substance: PACRITINIB
     Indication: Myelofibrosis
     Dosage: 200 MG, QD
     Route: 048
     Dates: start: 20220901
  2. AZITHROMYCIN [Concomitant]
     Active Substance: AZITHROMYCIN
  3. COLESTIPOL [Concomitant]
     Active Substance: COLESTIPOL
  4. COZAAR [Concomitant]
     Active Substance: LOSARTAN POTASSIUM
  5. LIDOCAINE AND PRILOCAINE [Concomitant]
     Active Substance: LIDOCAINE\PRILOCAINE
  6. OMEPRAZOLE [Concomitant]
     Active Substance: OMEPRAZOLE
  7. PRED FORTE [Concomitant]
     Active Substance: PREDNISOLONE ACETATE
  8. SYNTHROID [Concomitant]
     Active Substance: LEVOTHYROXINE SODIUM
  9. TIMOLOL [Concomitant]
     Active Substance: TIMOLOL
  10. TRAZODONE [Concomitant]
     Active Substance: TRAZODONE HYDROCHLORIDE
  11. VITAMIN D NOS [Concomitant]
     Active Substance: VITAMIN D NOS

REACTIONS (2)
  - Urinary tract infection [Unknown]
  - Eye infection [Unknown]
